FAERS Safety Report 15014107 (Version 1)
Quarter: 2018Q2

REPORT INFORMATION
  Report Type: Spontaneous
  Country: US (occurrence: US)
  Receive Date: 20180615
  Receipt Date: 20180615
  Transmission Date: 20180711
  Serious: Yes (Death, Other)
  Sender: FDA-Public Use
  Company Number: US-BRISTOL-MYERS SQUIBB COMPANY-BMS-2018-051993

PATIENT
  Sex: Male

DRUGS (1)
  1. YERVOY [Suspect]
     Active Substance: IPILIMUMAB
     Indication: SQUAMOUS CELL CARCINOMA OF LUNG
     Dosage: 53 MG, UNK
     Route: 065

REACTIONS (2)
  - Death [Fatal]
  - Product use in unapproved indication [Unknown]
